FAERS Safety Report 5348600-9 (Version None)
Quarter: 2007Q2

REPORT INFORMATION
  Report Type: 
  Country: None (occurrence: None)
  Receive Date: 20070605
  Receipt Date: 20070524
  Transmission Date: 20071010
  Serious: Yes (Hospitalization)
  Sender: FDA-Public Use
  Company Number: 235478K06USA

PATIENT
  Age: 73 Year
  Sex: Female

DRUGS (7)
  1. REBIF [Suspect]
     Indication: MULTIPLE SCLEROSIS
     Dosage: 8.8 MCG, 3 IN 1 WEEKS, SUBCUTANEOUS
     Route: 058
     Dates: start: 20060810, end: 20060903
  2. REBIF [Suspect]
     Indication: MULTIPLE SCLEROSIS
     Dosage: 8.8 MCG, 3 IN 1 WEEKS, SUBCUTANEOUS
     Route: 058
     Dates: start: 20060101, end: 20061201
  3. BACLOFEN [Concomitant]
  4. MONOPRIL [Concomitant]
  5. FOSAMAX [Concomitant]
  6. LASIX [Concomitant]
  7. CALCIUM AND VITAMIN D (CALCIUM D) [Concomitant]

REACTIONS (5)
  - CELLULITIS [None]
  - CLOSTRIDIAL INFECTION [None]
  - DYSPNOEA [None]
  - FEELING ABNORMAL [None]
  - MALAISE [None]
